FAERS Safety Report 9615176 (Version 1)
Quarter: 2013Q4

REPORT INFORMATION
  Report Type: Spontaneous
  Country: US (occurrence: US)
  Receive Date: 20131011
  Receipt Date: 20131011
  Transmission Date: 20140711
  Serious: No
  Sender: FDA-Public Use
  Company Number: US-PURDUE-USA-2013-0097790

PATIENT
  Age: 54 Year
  Sex: Female
  Weight: 74.38 kg

DRUGS (1)
  1. BUTRANS [Suspect]
     Indication: NEURALGIA
     Dosage: 20 MCG, UNK
     Route: 062
     Dates: start: 20130118

REACTIONS (2)
  - Dizziness [Not Recovered/Not Resolved]
  - Product adhesion issue [Unknown]
